FAERS Safety Report 20710306 (Version 1)
Quarter: 2022Q2

REPORT INFORMATION
  Report Type: Spontaneous
  Country: US (occurrence: None)
  Receive Date: 20220414
  Receipt Date: 20220414
  Transmission Date: 20220720
  Serious: No
  Sender: FDA-Public Use
  Company Number: None

PATIENT
  Age: 66 Year
  Sex: Male
  Weight: 78.75 kg

DRUGS (2)
  1. DOTAREM [Suspect]
     Active Substance: GADOTERATE MEGLUMINE
     Indication: Imaging procedure
     Dosage: OTHER FREQUENCY : ONCE;?
     Route: 040
  2. DOTAREM [Concomitant]
     Active Substance: GADOTERATE MEGLUMINE
     Dates: start: 20220413, end: 20220413

REACTIONS (5)
  - Vomiting [None]
  - Nausea [None]
  - Tongue pruritus [None]
  - Chest discomfort [None]
  - Dyspnoea [None]
